FAERS Safety Report 6221136-9 (Version None)
Quarter: 2009Q2

REPORT INFORMATION
  Report Type: 
  Country: None (occurrence: None)
  Receive Date: 20090610
  Receipt Date: 20090604
  Transmission Date: 20091009
  Serious: Yes (Other)
  Sender: FDA-Public Use
  Company Number: US-AMGEN-US327994

PATIENT
  Sex: Male

DRUGS (23)
  1. NPLATE [Suspect]
     Indication: IDIOPATHIC THROMBOCYTOPENIC PURPURA
     Dates: start: 20080924, end: 20081217
  2. VINCRISTINE [Suspect]
  3. ONDANSETRON [Concomitant]
  4. ALPRAZOLAM [Concomitant]
  5. MUCINEX [Concomitant]
  6. MULTI-VITAMINS [Concomitant]
  7. FLUTICASONE PROPIONATE [Concomitant]
     Route: 045
  8. PREDNISONE [Concomitant]
  9. NEULASTA [Concomitant]
  10. DEXAMETHASONE [Concomitant]
  11. POTASSIUM CHLORIDE [Concomitant]
  12. TRIAMTERENE AND HYDROCHLOROTHIAZIDE [Concomitant]
  13. PROCHLORPERAZINE MALEATE [Concomitant]
     Route: 048
  14. VALTREX [Concomitant]
  15. LIPITOR [Concomitant]
  16. AZITHROMYCIN [Concomitant]
  17. METFORMIN HYDROCHLORIDE [Concomitant]
  18. DETROL [Concomitant]
  19. TRICOR [Concomitant]
  20. RITUXIMAB [Concomitant]
  21. ETOPOSIDE [Concomitant]
  22. CISPLATIN [Concomitant]
  23. ARANESP [Concomitant]

REACTIONS (1)
  - MYELODYSPLASTIC SYNDROME [None]
